FAERS Safety Report 4947354-5 (Version None)
Quarter: 2006Q1

REPORT INFORMATION
  Report Type: 
  Country: None (occurrence: None)
  Receive Date: 20060317
  Receipt Date: 20051003
  Transmission Date: 20060701
  Serious: Yes (Hospitalization, Disabling, Other)
  Sender: FDA-Public Use
  Company Number: US-MERCK-0510USA02328

PATIENT
  Age: 53 Year
  Sex: Female
  Weight: 58 kg

DRUGS (7)
  1. VIOXX [Suspect]
     Indication: ARTHRITIS
     Route: 048
     Dates: end: 20041001
  2. VIOXX [Suspect]
     Indication: LOWER LIMB FRACTURE
     Route: 048
     Dates: end: 20041001
  3. ESTRADIOL [Concomitant]
     Route: 065
  4. TOPROL-XL [Concomitant]
     Route: 065
  5. ASPIRIN [Concomitant]
     Route: 065
  6. LIPITOR [Concomitant]
     Route: 065
  7. CYANOCOBALAMIN [Concomitant]
     Route: 051

REACTIONS (10)
  - ANAEMIA [None]
  - CARDIAC DISORDER [None]
  - CHEST PAIN [None]
  - COELIAC DISEASE [None]
  - CROHN'S DISEASE [None]
  - FIBROMYALGIA [None]
  - INFLAMMATORY BOWEL DISEASE [None]
  - MYOCARDIAL INFARCTION [None]
  - SLEEP APNOEA SYNDROME [None]
  - SYSTEMIC LUPUS ERYTHEMATOSUS [None]
